FAERS Safety Report 18113468 (Version 4)
Quarter: 2022Q3

REPORT INFORMATION
  Report Type: Spontaneous
  Country: US (occurrence: US)
  Receive Date: 20200805
  Receipt Date: 20220805
  Transmission Date: 20221027
  Serious: No
  Sender: FDA-Public Use
  Company Number: US-PFIZER INC-2020295906

PATIENT
  Age: 89 Year
  Sex: Male
  Weight: 76.2 kg

DRUGS (2)
  1. VYNDAMAX [Suspect]
     Active Substance: TAFAMIDIS
     Indication: Cardiac amyloidosis
     Dosage: 80 MG, DAILY (20MG 4 CAPSULES DAILY)
     Route: 048
     Dates: start: 201909
  2. VYNDAMAX [Suspect]
     Active Substance: TAFAMIDIS
     Dosage: 61 MG, 1X/DAY (61MG, CAPSULE, BY MOUTH, ONCE DAILY)
     Route: 048
     Dates: end: 20220227

REACTIONS (3)
  - Weight decreased [Unknown]
  - Illness [Unknown]
  - Ill-defined disorder [Unknown]
